FAERS Safety Report 4952685-9 (Version None)
Quarter: 2006Q1

REPORT INFORMATION
  Report Type: 
  Country: None (occurrence: None)
  Receive Date: 20060324
  Receipt Date: 20050601
  Transmission Date: 20060701
  Serious: Yes (Death)
  Sender: FDA-Public Use
  Company Number: US-NOVOPROD-244543

PATIENT
  Age: 74 Year
  Sex: Male
  Weight: 75 kg

DRUGS (4)
  1. NOVOSEVEN [Suspect]
     Indication: COAGULOPATHY
     Dosage: 96 UG/KG, SINGLE
     Route: 042
     Dates: start: 20050529, end: 20050529
  2. NOVOSEVEN [Suspect]
     Dosage: UNK, UNK
     Route: 042
     Dates: start: 20050529, end: 20050529
  3. KEFZOL [Concomitant]
     Indication: ILL-DEFINED DISORDER
     Route: 042
     Dates: start: 20050529, end: 20050529
  4. APROTININ [Concomitant]
     Indication: ILL-DEFINED DISORDER
     Dates: start: 20050529, end: 20050529

REACTIONS (1)
  - THERAPEUTIC RESPONSE DECREASED [None]
